FAERS Safety Report 10155153 (Version 1)
Quarter: 2014Q2

REPORT INFORMATION
  Report Type: Spontaneous
  Country: NL (occurrence: NL)
  Receive Date: 20140506
  Receipt Date: 20140506
  Transmission Date: 20141212
  Serious: Yes (Hospitalization)
  Sender: FDA-Public Use
  Company Number: NL-PFIZER INC-2014123134

PATIENT
  Age: 46 Year
  Sex: Female
  Weight: 75 kg

DRUGS (1)
  1. CHAMPIX [Suspect]
     Indication: SMOKING CESSATION THERAPY
     Dosage: 1 DF, 2X/DAY
     Dates: start: 20131014, end: 20131108

REACTIONS (2)
  - Cerebral vasoconstriction [Recovering/Resolving]
  - Headache [Recovering/Resolving]
